FAERS Safety Report 26194525 (Version 1)
Quarter: 2025Q4

REPORT INFORMATION
  Report Type: Report from Study
  Country: CN (occurrence: CN)
  Receive Date: 20251224
  Receipt Date: 20251224
  Transmission Date: 20260118
  Serious: Yes (Other)
  Sender: PFIZER
  Company Number: CN-TAKEDA-2022TUS032009

PATIENT
  Age: 32 Year
  Sex: Female

DRUGS (14)
  1. BRENTUXIMAB VEDOTIN [Suspect]
     Active Substance: BRENTUXIMAB VEDOTIN
     Indication: Hodgkin^s disease nodular sclerosis
     Dosage: 67 MILLIGRAM
     Route: 041
     Dates: start: 20210616
  2. DOXORUBICIN HYDROCHLORIDE [Suspect]
     Active Substance: DOXORUBICIN HYDROCHLORIDE
     Indication: Lymphoma
     Dosage: 30 MILLIGRAM, QD
     Route: 042
     Dates: start: 20210616, end: 20210616
  3. DOXORUBICIN HYDROCHLORIDE [Suspect]
     Active Substance: DOXORUBICIN HYDROCHLORIDE
     Dosage: 30 MILLIGRAM, QD
     Route: 042
     Dates: start: 20210825, end: 20210825
  4. VINDESINE [Suspect]
     Active Substance: VINDESINE
     Indication: Lymphoma
     Dosage: 4 MILLIGRAM, QD
     Route: 042
     Dates: start: 20220816, end: 20220816
  5. VINDESINE [Suspect]
     Active Substance: VINDESINE
     Dosage: 4 MILLIGRAM, QD
     Route: 042
     Dates: start: 20210825, end: 20210825
  6. DACARBAZINE [Suspect]
     Active Substance: DACARBAZINE
     Indication: Lymphoma
     Dosage: 600 MILLIGRAM, QD
     Route: 042
     Dates: start: 20210616, end: 20210616
  7. DACARBAZINE [Suspect]
     Active Substance: DACARBAZINE
     Dosage: 600 MILLIGRAM, QD
     Route: 042
     Dates: start: 20210825, end: 20210825
  8. TIANQING GAN PING [Concomitant]
     Indication: Prophylaxis
     Dosage: UNK UNK, TID
     Route: 048
     Dates: start: 2021
  9. SULFAMETHOXAZOLE [Concomitant]
     Active Substance: SULFAMETHOXAZOLE
     Indication: Infection
     Dosage: UNK UNK, QD
     Route: 048
     Dates: start: 2021
  10. LEUCOGEN [Concomitant]
     Active Substance: LEUCOGEN
     Indication: White blood cell count decreased
     Dosage: UNK UNK, TID
     Route: 048
     Dates: start: 2021
  11. ACYCLOVIR [Concomitant]
     Active Substance: ACYCLOVIR
     Indication: Antiviral treatment
     Dosage: UNK, BID
     Route: 048
     Dates: start: 202106
  12. LEVOFLOXACIN [Concomitant]
     Active Substance: LEVOFLOXACIN
     Indication: Infection
     Dosage: UNK UNK, BID
     Route: 048
     Dates: start: 202106
  13. ACETYLCYSTEINE [Concomitant]
     Active Substance: ACETYLCYSTEINE
     Indication: Infection prophylaxis
     Dosage: UNK, QD
     Route: 048
     Dates: start: 202107
  14. URSODIOL [Concomitant]
     Active Substance: URSODIOL
     Indication: Reflux gastritis
     Dosage: UNK UNK, BID
     Route: 048
     Dates: start: 202109

REACTIONS (5)
  - Neurotoxicity [Not Recovered/Not Resolved]
  - Gamma-glutamyltransferase increased [Not Recovered/Not Resolved]
  - Blood alkaline phosphatase increased [Not Recovered/Not Resolved]
  - Aspartate aminotransferase increased [Not Recovered/Not Resolved]
  - Off label use [Recovered/Resolved]

NARRATIVE: CASE EVENT DATE: 20210616
